FAERS Safety Report 6884288-3 (Version None)
Quarter: 2010Q3

REPORT INFORMATION
  Report Type: 
  Country: None (occurrence: None)
  Receive Date: 20100729
  Receipt Date: 20070604
  Transmission Date: 20110219
  Serious: Yes (Hospitalization, Other)
  Sender: FDA-Public Use
  Company Number: US-PFIZER INC-2007046948

PATIENT
  Sex: Male
  Weight: 109.09 kg

DRUGS (9)
  1. CELEBREX [Suspect]
     Indication: BACK PAIN
     Route: 048
  2. CHANTIX [Suspect]
     Indication: SMOKING CESSATION THERAPY
     Route: 048
     Dates: start: 20070520
  3. LOTREL [Concomitant]
  4. VYTORIN [Concomitant]
  5. ACETYLSALICYLIC ACID SRT [Concomitant]
  6. ZANAFLEX [Concomitant]
  7. SOMA [Concomitant]
  8. NORCO [Concomitant]
  9. METOPROLOL TARTRATE [Concomitant]

REACTIONS (3)
  - CORONARY ARTERY OCCLUSION [None]
  - DRUG INEFFECTIVE [None]
  - MYOCARDIAL INFARCTION [None]
